FAERS Safety Report 19005672 (Version 1)
Quarter: 2021Q1

REPORT INFORMATION
  Report Type: Spontaneous
  Country: US (occurrence: US)
  Receive Date: 20210313
  Receipt Date: 20210313
  Transmission Date: 20210420
  Serious: Yes (Hospitalization, Other)
  Sender: FDA-Public Use
  Company Number: US-JNJFOC-20191215112

PATIENT
  Sex: Male
  Weight: 104.42 kg

DRUGS (1)
  1. IMODIUM A?D [Suspect]
     Active Substance: LOPERAMIDE HYDROCHLORIDE
     Indication: PRODUCT USED FOR UNKNOWN INDICATION
     Dosage: 150 CAPLETS PER DAY.
     Route: 048

REACTIONS (3)
  - Intentional product misuse [Unknown]
  - Drug dependence [Unknown]
  - Clostridium difficile infection [Not Recovered/Not Resolved]
